FAERS Safety Report 18580495 (Version 2)
Quarter: 2020Q4

REPORT INFORMATION
  Report Type: Spontaneous
  Country: JP (occurrence: JP)
  Receive Date: 20201204
  Receipt Date: 20201207
  Transmission Date: 20210114
  Serious: Yes (Death, Other)
  Sender: FDA-Public Use
  Company Number: JP-ASTRAZENECA-2020SF61110

PATIENT
  Age: 52 Year
  Sex: Female

DRUGS (1)
  1. LYNPARZA [Suspect]
     Active Substance: OLAPARIB
     Indication: FALLOPIAN TUBE CANCER STAGE IV
     Dosage: DOSE UNKNOWN
     Route: 048

REACTIONS (2)
  - Interstitial lung disease [Unknown]
  - Malignant neoplasm progression [Fatal]
